FAERS Safety Report 7168502-5 (Version None)
Quarter: 2010Q4

REPORT INFORMATION
  Report Type: 
  Country: None (occurrence: None)
  Receive Date: 20101216
  Receipt Date: 20101204
  Transmission Date: 20110411
  Serious: Yes (Hospitalization)
  Sender: FDA-Public Use
  Company Number: AU-ELI_LILLY_AND_COMPANY-AU201012001811

PATIENT
  Sex: Female

DRUGS (11)
  1. GEMCITABINE HCL [Suspect]
     Indication: PANCREATIC CARCINOMA
     Dosage: 1000 MG/M2, UNK
     Route: 065
     Dates: start: 20100816
  2. PACLITAXEL [Suspect]
     Indication: PANCREATIC CARCINOMA
     Dosage: 125 MG/M2, WEEKLY (1/W)
     Route: 065
     Dates: start: 20100816
  3. IRBESARTAN [Concomitant]
     Indication: HYPERTENSION
  4. LIPITOR [Concomitant]
     Indication: HYPERCHOLESTEROLAEMIA
  5. VITAMIN E [Concomitant]
     Indication: PROPHYLAXIS
  6. DEXAMETHASONE [Concomitant]
     Indication: PROPHYLAXIS
  7. PARACETAMOL [Concomitant]
     Indication: PROPHYLAXIS
  8. DOMPERIDONE [Concomitant]
     Indication: NAUSEA
  9. GRANISETRON HCL [Concomitant]
     Indication: PROPHYLAXIS
  10. TEMAZEPAM [Concomitant]
     Indication: INSOMNIA
  11. PREDNISOLONE [Concomitant]
     Indication: DYSPNOEA

REACTIONS (1)
  - PULMONARY EMBOLISM [None]
